FAERS Safety Report 9384609 (Version 1)
Quarter: 2013Q3

REPORT INFORMATION
  Report Type: Spontaneous
  Country: US (occurrence: US)
  Receive Date: 20130705
  Receipt Date: 20130705
  Transmission Date: 20140515
  Serious: No
  Sender: FDA-Public Use
  Company Number: US-BAYER-2013-081590

PATIENT
  Sex: Female
  Weight: 145.13 kg

DRUGS (4)
  1. BETASERON [Suspect]
     Dosage: 0.25 MG, QOD
     Route: 058
  2. PROVIGIL [Concomitant]
     Dosage: 200 MG, UNK
  3. AMANTADINE [Concomitant]
     Dosage: 100 MG, UNK
  4. BACLOFEN [Concomitant]
     Dosage: 10 MG, UNK

REACTIONS (4)
  - Restless legs syndrome [Unknown]
  - Disturbance in attention [Unknown]
  - Mobility decreased [Unknown]
  - Memory impairment [Unknown]
